FAERS Safety Report 6433225-4 (Version None)
Quarter: 2009Q4

REPORT INFORMATION
  Report Type: 
  Country: None (occurrence: None)
  Receive Date: 20091105
  Receipt Date: 20091020
  Transmission Date: 20100525
  Serious: Yes (Other)
  Sender: FDA-Public Use
  Company Number: DSA_41907_2009

PATIENT
  Age: 79 Year
  Sex: Female

DRUGS (8)
  1. DILTIAZEM HYDROCHLORIDE              (DILTIAZEM) [Suspect]
     Indication: ATRIAL FIBRILLATION
     Dosage: (90 MG BID ORAL)
     Route: 048
     Dates: start: 20090811, end: 20090916
  2. AMLODIPINE [Concomitant]
  3. EPOSARTAN [Concomitant]
  4. TORASEMIDE [Concomitant]
  5. L-THYROXIN [Concomitant]
  6. PHENPROCOUMON [Concomitant]
  7. EZETIMIBE [Concomitant]
  8. FENOFIBRATE [Concomitant]

REACTIONS (8)
  - ALANINE AMINOTRANSFERASE INCREASED [None]
  - ASPARTATE AMINOTRANSFERASE INCREASED [None]
  - BLOOD CREATINE PHOSPHOKINASE INCREASED [None]
  - BLOOD UREA INCREASED [None]
  - MYOGLOBIN BLOOD INCREASED [None]
  - PRURITUS [None]
  - STRESS [None]
  - URTICARIA [None]
